FAERS Safety Report 8950282 (Version 1)
Quarter: 2012Q4

REPORT INFORMATION
  Report Type: 
  Country: US (occurrence: US)
  Receive Date: 20121205
  Receipt Date: 20121205
  Transmission Date: 20130627
  Serious: Yes (Other)
  Sender: FDA-Public Use
  Company Number: US-PFIZER INC-2012302022

PATIENT
  Age: 61 Year
  Sex: Male
  Weight: 59.41 kg

DRUGS (20)
  1. NITROSTAT [Suspect]
     Indication: ANGINA PECTORIS
     Dosage: 0.6 mg, as needed
     Route: 060
     Dates: end: 20121130
  2. NITROSTAT [Suspect]
     Dosage: 0.4 mg, UNK
     Route: 060
     Dates: start: 20121130
  3. NITROGLYCERIN [Concomitant]
     Indication: CHEST PAIN
     Dosage: UNK mmol, UNK
     Route: 062
  4. CEFAZOLIN [Concomitant]
     Dosage: 1 g, UNK
  5. ALPRAZOLAM [Concomitant]
     Dosage: UNK
  6. KETOROLAC [Concomitant]
     Dosage: 15 g, UNK
  7. DOCUSATE [Concomitant]
     Dosage: 100 mg, UNK
  8. HYDROMORPHONE [Concomitant]
     Dosage: UNK
  9. ONDANSETRON [Concomitant]
     Dosage: UNK
  10. OXYCODONE [Concomitant]
     Dosage: UNK
  11. METOPROLOL ER [Concomitant]
     Dosage: UNK
  12. OXYBUTYNIN [Concomitant]
     Dosage: UNK
  13. ACETAMINOPHEN [Concomitant]
     Dosage: UNK
  14. PREMARIN [Concomitant]
     Dosage: UNK
  15. DIGOXIN [Concomitant]
     Dosage: UNK
  16. VENLAFAXINE [Concomitant]
     Dosage: UNK
  17. CYCLOBENZAPRINE [Concomitant]
     Dosage: UNK
  18. PHENAZOPYRIDINE [Concomitant]
     Dosage: UNK
  19. DIPHENHYDRAMINE [Concomitant]
     Dosage: UNK
  20. ZOLPIDEM [Concomitant]
     Dosage: UNK

REACTIONS (3)
  - Bladder disorder [Unknown]
  - Drug ineffective [Unknown]
  - Product solubility abnormal [Unknown]
